FAERS Safety Report 9003456 (Version 1)
Quarter: 2013Q1

REPORT INFORMATION
  Report Type: Spontaneous
  Country: GB (occurrence: GB)
  Receive Date: 20130108
  Receipt Date: 20130108
  Transmission Date: 20140127
  Serious: Yes (Other)
  Sender: FDA-Public Use
  Company Number: PHHY2013GB001394

PATIENT
  Age: 64 Year
  Sex: Male
  Weight: 115 kg

DRUGS (6)
  1. SERTRALINE HYDROCHLORIDE [Suspect]
     Indication: DEPRESSION
     Dosage: 100 MG
     Route: 048
     Dates: start: 20110530, end: 201203
  2. SERTRALINE HYDROCHLORIDE [Suspect]
     Dosage: 25 MG
     Route: 048
     Dates: start: 201203, end: 20120606
  3. RAMIPRIL [Concomitant]
  4. FUROSEMIDE [Concomitant]
  5. ALFUZOSIN [Concomitant]
  6. ASPIRIN [Concomitant]

REACTIONS (1)
  - Sexual dysfunction [Not Recovered/Not Resolved]
